FAERS Safety Report 13360652 (Version 1)
Quarter: 2017Q1

REPORT INFORMATION
  Report Type: Report from Study
  Country: US (occurrence: US)
  Receive Date: 20170322
  Receipt Date: 20170322
  Transmission Date: 20170429
  Serious: Yes (Death)
  Sender: FDA-Public Use
  Company Number: US-ACTELION-A-NJ2013-77349

PATIENT
  Age: 61 Year
  Sex: Female

DRUGS (4)
  1. VELETRI [Suspect]
     Active Substance: EPOPROSTENOL
     Indication: PULMONARY ARTERIAL HYPERTENSION
     Dosage: 6 NG/KG, PER MIN
     Route: 042
     Dates: start: 20121219
  2. VENTAVIS [Concomitant]
     Active Substance: ILOPROST
     Indication: PULMONARY ARTERIAL HYPERTENSION
     Route: 055
  3. VELETRI [Suspect]
     Active Substance: EPOPROSTENOL
     Dosage: 18 NG/KG, PER MIN
     Route: 042
  4. DILTIAZEM. [Concomitant]
     Active Substance: DILTIAZEM

REACTIONS (13)
  - Death [Fatal]
  - Application site pruritus [Unknown]
  - Arthritis [Unknown]
  - Bone pain [Unknown]
  - Pain in jaw [Unknown]
  - Myalgia [Unknown]
  - Vomiting [Unknown]
  - Back pain [Unknown]
  - Arthralgia [Unknown]
  - Headache [Unknown]
  - Rotator cuff syndrome [Unknown]
  - Abdominal pain [Unknown]
  - Nausea [Unknown]

NARRATIVE: CASE EVENT DATE: 20170307
